FAERS Safety Report 24724450 (Version 2)
Quarter: 2025Q4

REPORT INFORMATION
  Report Type: Spontaneous
  Country: US (occurrence: None)
  Receive Date: 20241212
  Receipt Date: 20251212
  Transmission Date: 20260117
  Serious: No
  Sender: ENDO
  Company Number: US-ENDO USA, INC.-2024-002799

PATIENT
  Sex: Female

DRUGS (2)
  1. FROVA [Suspect]
     Active Substance: FROVATRIPTAN SUCCINATE
     Indication: Migraine
     Dosage: 0.5 DOSAGE FORM, PRN (HALF TABLET AS NEEDED, TOOK HALF OF TABLET AND THEN WAIT 4-6 HOURS AND TAKE ANOTHER HALF OF A TABLET)
     Route: 065
  2. TYLENOL EXTRA STRENGTH [Concomitant]
     Active Substance: ACETAMINOPHEN
     Indication: Pain
     Dosage: 2 DOSAGE FORM (TABLETS), UNKNOWN
     Route: 065

REACTIONS (4)
  - Blood sodium abnormal [Recovered/Resolved]
  - Therapeutic product effect incomplete [Unknown]
  - Wrong technique in product usage process [Not Recovered/Not Resolved]
  - Product availability issue [Not Recovered/Not Resolved]

NARRATIVE: CASE EVENT DATE: 20250101
